FAERS Safety Report 10560034 (Version 1)
Quarter: 2014Q4

REPORT INFORMATION
  Report Type: Spontaneous
  Country: US (occurrence: None)
  Receive Date: 20141030
  Receipt Date: 20141030
  Transmission Date: 20150529
  Serious: No
  Sender: FDA-Public Use
  Company Number: None

PATIENT
  Age: 51 Year
  Sex: Female
  Weight: 92.08 kg

DRUGS (2)
  1. NIFEDIPINE. [Concomitant]
     Active Substance: NIFEDIPINE
  2. GENERIC VALSARTAN/HCT [Suspect]
     Active Substance: HYDROCHLOROTHIAZIDE\VALSARTAN
     Indication: HYPERTENSION
     Route: 048
     Dates: start: 20130208, end: 20130405

REACTIONS (2)
  - Dizziness [None]
  - Muscle spasms [None]
